FAERS Safety Report 7895666-8 (Version None)
Quarter: 2011Q4

REPORT INFORMATION
  Report Type: 
  Country: None (occurrence: None)
  Receive Date: 20111102
  Receipt Date: 20111021
  Transmission Date: 20120403
  Serious: Yes (Other)
  Sender: FDA-Public Use
  Company Number: JPI-P-017828

PATIENT
  Age: 62 Year
  Sex: Female
  Weight: 71.6683 kg

DRUGS (2)
  1. XYREM [Suspect]
     Indication: HYPERSOMNIA
     Dosage: ( , 2 IN 1 D), ORAL
     Route: 048
     Dates: start: 20041201
  2. UNSPECIFIED MEDICATIONS [Concomitant]

REACTIONS (4)
  - RETINAL TEAR [None]
  - CATARACT OPERATION [None]
  - HERPES VIRUS INFECTION [None]
  - EYE INFECTION VIRAL [None]
